FAERS Safety Report 5343395-7 (Version None)
Quarter: 2007Q2

REPORT INFORMATION
  Report Type: 
  Country: None (occurrence: None)
  Receive Date: 20070602
  Receipt Date: 20070524
  Transmission Date: 20071010
  Serious: Yes (Hospitalization)
  Sender: FDA-Public Use
  Company Number: US-ALLERGAN-0705246US

PATIENT
  Age: 2 Year
  Sex: Female
  Weight: 14 kg

DRUGS (4)
  1. BOTOX [Suspect]
     Indication: QUADRIPARESIS
     Dosage: 160 UNITS, SINGLE
     Route: 030
     Dates: start: 20070508, end: 20070508
  2. BOTOX [Suspect]
  3. BOTOX [Suspect]
  4. KEPPRA [Concomitant]
     Indication: CONVULSION

REACTIONS (5)
  - BOTULISM [None]
  - DYSPHAGIA [None]
  - EYELID PTOSIS [None]
  - GASTROENTERITIS ROTAVIRUS [None]
  - MUSCULAR WEAKNESS [None]
